FAERS Safety Report 7815880-7 (Version None)
Quarter: 2011Q4

REPORT INFORMATION
  Report Type: 
  Country: None (occurrence: None)
  Receive Date: 20111014
  Receipt Date: 20111006
  Transmission Date: 20120403
  Serious: Yes (Hospitalization, Other)
  Sender: FDA-Public Use
  Company Number: MX-SANOFI-AVENTIS-2011SA065676

PATIENT
  Age: 62 Year
  Sex: Female
  Weight: 52 kg

DRUGS (6)
  1. AMARYL [Suspect]
     Indication: TYPE 2 DIABETES MELLITUS
     Route: 048
     Dates: start: 20050101, end: 20110307
  2. CITRICAL [Concomitant]
     Indication: BONE DECALCIFICATION
     Route: 048
     Dates: start: 20110823
  3. MICARDIS [Concomitant]
     Route: 048
  4. LANTUS [Suspect]
     Route: 058
     Dates: start: 20110801
  5. LANTUS [Suspect]
     Indication: TYPE 2 DIABETES MELLITUS
     Route: 058
     Dates: start: 20050101, end: 20110801
  6. ANALGESICS [Concomitant]
     Indication: FRACTURE
     Route: 048
     Dates: start: 20110823

REACTIONS (5)
  - FOOT FRACTURE [None]
  - OSTEOPENIA [None]
  - RENAL FAILURE [None]
  - HYPERGLYCAEMIA [None]
  - HYPOGLYCAEMIA [None]
